FAERS Safety Report 6986689-1 (Version None)
Quarter: 2010Q3

REPORT INFORMATION
  Report Type: 
  Country: None (occurrence: None)
  Receive Date: 20100915
  Receipt Date: 20090724
  Transmission Date: 20110219
  Serious: No
  Sender: FDA-Public Use
  Company Number: US-WYE-H10332109

PATIENT
  Sex: Female

DRUGS (4)
  1. PRISTIQ [Suspect]
     Indication: DEPRESSION
     Dosage: 50 MG EVERY 1 TOT
     Route: 048
     Dates: start: 20090723, end: 20090724
  2. LISINOPRIL [Concomitant]
  3. METFORMIN [Concomitant]
  4. CELEXA [Concomitant]

REACTIONS (1)
  - SWOLLEN TONGUE [None]
